FAERS Safety Report 11438326 (Version 1)
Quarter: 2015Q3

REPORT INFORMATION
  Report Type: Spontaneous
  Country: US (occurrence: None)
  Receive Date: 20150831
  Receipt Date: 20150831
  Transmission Date: 20151125
  Serious: No
  Sender: FDA-Public Use
  Company Number: None

PATIENT
  Age: 80 Year
  Sex: Male
  Weight: 78 kg

DRUGS (1)
  1. VANCOMYCIN 5G HOSPIRA [Suspect]
     Active Substance: VANCOMYCIN
     Indication: BONE DISORDER
     Route: 042
     Dates: start: 201407, end: 20150810

REACTIONS (2)
  - Peripheral swelling [None]
  - Rash [None]

NARRATIVE: CASE EVENT DATE: 20150731
